FAERS Safety Report 9171382 (Version 1)
Quarter: 2013Q1

REPORT INFORMATION
  Report Type: Spontaneous
  Country: CA (occurrence: None)
  Receive Date: 20130313
  Receipt Date: 20130313
  Transmission Date: 20140127
  Serious: Yes (Death)
  Sender: FDA-Public Use
  Company Number: AECAN201200134

PATIENT
  Sex: Male

DRUGS (1)
  1. ALPHA1-PROTEINASE INHIBITOR HUMAN [Suspect]
     Indication: ALPHA-1 ANTI-TRYPSIN DEFICIENCY
     Route: 042

REACTIONS (1)
  - Drug ineffective [None]
